FAERS Safety Report 7343277-5 (Version None)
Quarter: 2011Q1

REPORT INFORMATION
  Report Type: 
  Country: None (occurrence: None)
  Receive Date: 20110308
  Receipt Date: 20110308
  Transmission Date: 20110831
  Serious: Yes (Life-Threatening)
  Sender: FDA-Public Use
  Company Number: None

PATIENT
  Age: 79 Year
  Sex: Male
  Weight: 56.6 kg

DRUGS (2)
  1. HEPARIN [Suspect]
     Indication: DEEP VEIN THROMBOSIS
     Dosage: 5000 UNITS TID EAR
     Dates: start: 20101031, end: 20101108
  2. HEPARIN [Suspect]
     Indication: THROMBOCYTOPENIA
     Dosage: 5000 UNITS TID EAR
     Dates: start: 20101031, end: 20101108

REACTIONS (2)
  - DEEP VEIN THROMBOSIS [None]
  - HEPARIN-INDUCED THROMBOCYTOPENIA [None]
